FAERS Safety Report 5048897-9 (Version None)
Quarter: 2006Q2

REPORT INFORMATION
  Report Type: 
  Country: None (occurrence: None)
  Receive Date: 20060601
  Receipt Date: 20060302
  Transmission Date: 20061013
  Serious: No
  Sender: FDA-Public Use
  Company Number: US200603000861

PATIENT
  Sex: Female

DRUGS (1)
  1. CYMBALTA [Suspect]
     Indication: ANXIETY
     Dosage: 180 MG, DAILY (1/D), ORAL
     Route: 048
     Dates: start: 20060101

REACTIONS (1)
  - PRESCRIBED OVERDOSE [None]
